FAERS Safety Report 20814926 (Version 1)
Quarter: 2022Q2

REPORT INFORMATION
  Report Type: Spontaneous
  Country: US (occurrence: US)
  Receive Date: 20220511
  Receipt Date: 20220511
  Transmission Date: 20220721
  Serious: No
  Sender: FDA-Public Use
  Company Number: US-PFIZER INC-202101844060

PATIENT
  Age: 72 Year
  Sex: Male

DRUGS (3)
  1. VFEND [Suspect]
     Active Substance: VORICONAZOLE
     Indication: Lung transplant
     Dosage: 300 MG, 2X/DAY (TOTAL DOSE IS 300 MG TWICE DAILY)
     Route: 048
  2. VFEND [Suspect]
     Active Substance: VORICONAZOLE
     Dosage: 100 MG, 2X/DAY (TAKE 2 TABLETS (100 MG TOTAL) BY MOUTH 2 (TWO) TIMES A DAY)
     Route: 048
  3. VFEND [Suspect]
     Active Substance: VORICONAZOLE
     Dosage: 200 MG, 2X/DAY
     Route: 048

REACTIONS (1)
  - Product use in unapproved indication [Unknown]
